FAERS Safety Report 8949849 (Version 1)
Quarter: 2012Q4

REPORT INFORMATION
  Report Type: 
  Country: IE (occurrence: IE)
  Receive Date: 20121206
  Receipt Date: 20121206
  Transmission Date: 20130627
  Serious: Yes (Other)
  Sender: FDA-Public Use
  Company Number: IE-ABBOTT-12P-229-1015381-00

PATIENT
  Sex: Male
  Weight: 10.7 kg

DRUGS (1)
  1. PALIVIZUMAB [Suspect]
     Route: 030
     Dates: start: 20121031

REACTIONS (1)
  - Lower respiratory tract infection [Recovering/Resolving]
